FAERS Safety Report 15802228 (Version 1)
Quarter: 2019Q1

REPORT INFORMATION
  Report Type: Spontaneous
  Country: US (occurrence: US)
  Receive Date: 20190108
  Receipt Date: 20190108
  Transmission Date: 20190417
  Serious: Yes (Other)
  Sender: FDA-Public Use
  Company Number: None

PATIENT
  Age: 77 Year
  Sex: Female

DRUGS (1)
  1. ADCIRCA [Suspect]
     Active Substance: TADALAFIL
     Indication: HYPERTENSION
     Dosage: ?          OTHER FREQUENCY:20MG QAM, 40MG QPM;?
     Route: 048
     Dates: start: 20180126

REACTIONS (2)
  - Myalgia [None]
  - Vision blurred [None]
